FAERS Safety Report 4551728-4 (Version None)
Quarter: 2005Q1

REPORT INFORMATION
  Report Type: 
  Country: None (occurrence: None)
  Receive Date: 20050110
  Receipt Date: 20041224
  Transmission Date: 20050727
  Serious: Yes (Hospitalization)
  Sender: FDA-Public Use
  Company Number: DSA_24981_2004

PATIENT
  Age: 68 Year
  Sex: Male

DRUGS (5)
  1. TEVETEN [Suspect]
     Indication: HYPERTENSION
     Dosage: 600 MG Q DAY PO
     Route: 048
     Dates: start: 20040601, end: 20040701
  2. LOPRESSOR [Concomitant]
  3. NOVASEN [Concomitant]
  4. LIPITOR [Concomitant]
  5. ADALAT [Concomitant]

REACTIONS (3)
  - AORTIC STENOSIS [None]
  - CONDITION AGGRAVATED [None]
  - HYPERTENSION [None]
